FAERS Safety Report 20619790 (Version 1)
Quarter: 2022Q1

REPORT INFORMATION
  Report Type: Spontaneous
  Country: US (occurrence: US)
  Receive Date: 20220322
  Receipt Date: 20220322
  Transmission Date: 20220423
  Serious: No
  Sender: FDA-Public Use
  Company Number: US-SUN PHARMACEUTICAL INDUSTRIES LTD-2022R1-326675

PATIENT
  Age: 83 Year
  Sex: Female

DRUGS (1)
  1. LOTEPREDNOL [Suspect]
     Active Substance: LOTEPREDNOL
     Indication: Glaucoma
     Dosage: UNK
     Route: 047

REACTIONS (4)
  - Dizziness [Unknown]
  - Eye pain [Unknown]
  - Foreign body in eye [Unknown]
  - Vision blurred [Unknown]
